FAERS Safety Report 6356895-8 (Version None)
Quarter: 2009Q3

REPORT INFORMATION
  Report Type: 
  Country: None (occurrence: None)
  Receive Date: 20090915
  Receipt Date: 20090903
  Transmission Date: 20100115
  Serious: Yes (Death, Hospitalization, Other)
  Sender: FDA-Public Use
  Company Number: US-JNJFOC-20090707776

PATIENT
  Age: 52 Year
  Sex: Male

DRUGS (7)
  1. REMICADE [Suspect]
     Dosage: 1 INFUSION
     Route: 042
  2. REMICADE [Suspect]
     Indication: CROHN'S DISEASE
     Dosage: 3 TOTAL INFUSIONS
     Route: 042
  3. TYSABRI [Suspect]
     Indication: CROHN'S DISEASE
     Dosage: INTERVAL FROM 1ST DOSE TO THE EVENT WAS 7 MONTHS; 3 TOTAL DOSES RECEIVED
     Route: 042
  4. ADALIMUMAB [Suspect]
     Indication: CROHN'S DISEASE
  5. AZATHIOPRINE [Suspect]
     Indication: CROHN'S DISEASE
  6. PREDNISOLONE [Suspect]
     Indication: CROHN'S DISEASE
  7. STEROIDS NOS [Suspect]
     Indication: CROHN'S DISEASE

REACTIONS (10)
  - ANAPHYLACTOID REACTION [None]
  - DEATH [None]
  - DRUG INEFFECTIVE [None]
  - HEPATOSPLENIC T-CELL LYMPHOMA [None]
  - MYELODYSPLASTIC SYNDROME [None]
  - MYELOFIBROSIS [None]
  - MYELOPROLIFERATIVE DISORDER [None]
  - POLYCYTHAEMIA VERA [None]
  - POLYP [None]
  - THROMBOCYTOPENIA [None]
